FAERS Safety Report 16703761 (Version 2)
Quarter: 2019Q3

REPORT INFORMATION
  Report Type: Spontaneous
  Country: US (occurrence: US)
  Receive Date: 20190814
  Receipt Date: 20190829
  Transmission Date: 20191004
  Serious: No
  Sender: FDA-Public Use
  Company Number: US-PFIZER INC-2019344438

PATIENT
  Age: 69 Year
  Sex: Female
  Weight: 96.15 kg

DRUGS (2)
  1. MORPHINE SULFATE. [Suspect]
     Active Substance: MORPHINE SULFATE
     Indication: NEURALGIA
     Dosage: 15 MG, 2X/DAY
     Dates: start: 20190418, end: 20190518
  2. MORPHINE SULFATE. [Suspect]
     Active Substance: MORPHINE SULFATE
     Dosage: 15 MG, 3X/DAY
     Dates: start: 20190418, end: 20190612

REACTIONS (1)
  - Drug ineffective [Not Recovered/Not Resolved]
